FAERS Safety Report 20074651 (Version 1)
Quarter: 2021Q4

REPORT INFORMATION
  Report Type: Spontaneous
  Country: CN (occurrence: CN)
  Receive Date: 20211116
  Receipt Date: 20211116
  Transmission Date: 20220303
  Serious: Yes (Hospitalization, Other)
  Sender: FDA-Public Use
  Company Number: CN-SA-SAC20211116000039

PATIENT
  Age: 73 Year
  Sex: Male
  Weight: 57 kg

DRUGS (2)
  1. CAPECITABINE [Suspect]
     Active Substance: CAPECITABINE
     Indication: Rectal cancer metastatic
     Dosage: 0.5 G, QD
     Route: 048
     Dates: start: 20201217, end: 20210912
  2. ELOXATIN [Suspect]
     Active Substance: OXALIPLATIN
     Indication: Rectal cancer metastatic
     Dosage: 150 MG, QOW
     Route: 041
     Dates: start: 20201217, end: 20210912

REACTIONS (2)
  - Septic shock [Recovering/Resolving]
  - Myelosuppression [Recovering/Resolving]

NARRATIVE: CASE EVENT DATE: 20210912
